FAERS Safety Report 15141740 (Version 1)
Quarter: 2018Q3

REPORT INFORMATION
  Report Type: Spontaneous
  Country: US (occurrence: US)
  Receive Date: 20180713
  Receipt Date: 20180713
  Transmission Date: 20181010
  Serious: Yes (Other)
  Sender: FDA-Public Use
  Company Number: US-ASTELLAS-2017US036329

PATIENT
  Sex: Male

DRUGS (1)
  1. MYRBETRIQ [Suspect]
     Active Substance: MIRABEGRON
     Indication: PRODUCT USED FOR UNKNOWN INDICATION
     Dosage: 25MG, 50MG, UNKNOWN FREQ.
     Route: 048
     Dates: start: 201707, end: 20170805

REACTIONS (2)
  - Urinary retention [Recovered/Resolved]
  - Hypertension [Recovered/Resolved]
